FAERS Safety Report 21169520 (Version 2)
Quarter: 2022Q3

REPORT INFORMATION
  Report Type: Spontaneous
  Country: US (occurrence: US)
  Receive Date: 20220804
  Receipt Date: 20220811
  Transmission Date: 20221027
  Serious: Yes (Other)
  Sender: FDA-Public Use
  Company Number: US-BRISTOL-MYERS SQUIBB COMPANY-2022-075389

PATIENT
  Age: 71 Year
  Sex: Female
  Weight: 64.41 kg

DRUGS (19)
  1. REVLIMID [Suspect]
     Active Substance: LENALIDOMIDE
     Indication: Product used for unknown indication
     Dosage: 21 OF 28 DAYS
     Route: 048
     Dates: start: 20190813
  2. REVLIMID [Suspect]
     Active Substance: LENALIDOMIDE
     Indication: Plasma cell myeloma
     Dosage: DAILY
     Route: 048
  3. REVLIMID [Suspect]
     Active Substance: LENALIDOMIDE
     Dosage: DAILY
     Route: 048
     Dates: start: 20220629, end: 20220802
  4. REVLIMID [Suspect]
     Active Substance: LENALIDOMIDE
     Route: 048
     Dates: start: 20220802
  5. XTRA ACYCLOVIR [Concomitant]
     Indication: Product used for unknown indication
     Route: 048
     Dates: start: 20190813
  6. NORMABEL [Concomitant]
     Active Substance: DIAZEPAM
     Indication: Product used for unknown indication
     Route: 048
     Dates: start: 20190813
  7. ACETAMINOPHEN [Concomitant]
     Active Substance: ACETAMINOPHEN
     Indication: Product used for unknown indication
     Dosage: 5-325MG EVERY 4-6HOURS
     Route: 048
     Dates: start: 20190813
  8. DILTIAZEM [Concomitant]
     Active Substance: DILTIAZEM
     Indication: Product used for unknown indication
     Dosage: DAILY
     Route: 048
     Dates: start: 20190813
  9. ASPIRIN TEVA [Concomitant]
     Indication: Product used for unknown indication
     Dosage: DAILY
     Route: 048
     Dates: start: 20190813
  10. OXYCODONE HYDROCHLORIDE [Concomitant]
     Active Substance: OXYCODONE HYDROCHLORIDE
     Indication: Product used for unknown indication
     Route: 048
     Dates: start: 20200506
  11. GANIN [GABAPENTIN] [Concomitant]
     Indication: Product used for unknown indication
     Dosage: 3TIMES A DAY
     Route: 048
     Dates: start: 20200506
  12. PEPCID RPD [Concomitant]
     Active Substance: FAMOTIDINE
     Indication: Product used for unknown indication
     Dosage: 1 TAB AT BED TIME
     Route: 048
     Dates: start: 20200506
  13. UNI CLARITIN [Concomitant]
     Indication: Product used for unknown indication
     Dosage: DAILY
     Route: 048
     Dates: start: 20200506
  14. VITAMIN B COMPLEX [CYANOCOBALAMIN] [Concomitant]
     Indication: Product used for unknown indication
     Dosage: DAILY
     Route: 048
     Dates: start: 20200506
  15. MAGNESIUMCITRAT [Concomitant]
     Indication: Product used for unknown indication
     Dosage: DAILY
     Route: 048
     Dates: start: 20200506
  16. ZOMETA [Concomitant]
     Active Substance: ZOLEDRONIC ACID
     Indication: Product used for unknown indication
     Dosage: 4MG/5ML.MONTHLY
     Route: 041
     Dates: start: 20200831
  17. STIOLTO RESPIMAT [Concomitant]
     Active Substance: OLODATEROL HYDROCHLORIDE\TIOTROPIUM BROMIDE MONOHYDRATE
     Indication: Product used for unknown indication
     Dosage: 2.5-2.5.TWICE A DAY
     Route: 065
     Dates: start: 20210416
  18. BUDESONIDE\FORMOTEROL\GLYCOPYRRONIUM [Concomitant]
     Active Substance: BUDESONIDE\FORMOTEROL\GLYCOPYRRONIUM
     Indication: Product used for unknown indication
     Dosage: 160-9-4.8
     Route: 065
     Dates: start: 20210604
  19. TRIGLICOL [ATORVASTATIN CALCIUM] [Concomitant]
     Indication: Product used for unknown indication
     Dosage: DAILY
     Route: 048
     Dates: start: 20220128

REACTIONS (3)
  - Diarrhoea haemorrhagic [Unknown]
  - Diarrhoea [Unknown]
  - Upper respiratory tract infection [Unknown]

NARRATIVE: CASE EVENT DATE: 20220703
